FAERS Safety Report 15867472 (Version 3)
Quarter: 2019Q4

REPORT INFORMATION
  Report Type: Report from Study
  Country: DE (occurrence: DE)
  Receive Date: 20190125
  Receipt Date: 20191115
  Transmission Date: 20200122
  Serious: Yes (Hospitalization)
  Sender: FDA-Public Use
  Company Number: DE-JNJFOC-20180842084

PATIENT
  Age: 78 Year
  Sex: Male
  Weight: 97 kg

DRUGS (34)
  1. IBRUTINIB [Suspect]
     Active Substance: IBRUTINIB
     Route: 048
     Dates: start: 20180918
  2. LERCANIDIPINE [Concomitant]
     Active Substance: LERCANIDIPINE
     Route: 065
     Dates: end: 20180921
  3. CANDESARTAN. [Concomitant]
     Active Substance: CANDESARTAN
     Route: 065
  4. FOSTER [Concomitant]
     Active Substance: BECLOMETHASONE\FORMOTEROL
     Route: 065
  5. MAGNESIUM [Concomitant]
     Active Substance: MAGNESIUM
     Route: 065
     Dates: end: 20180921
  6. XIPAMID [Concomitant]
     Active Substance: XIPAMIDE
     Route: 065
     Dates: end: 20180921
  7. XIPAMID [Concomitant]
     Active Substance: XIPAMIDE
     Dates: start: 20190401
  8. PANTOZOL [Concomitant]
     Active Substance: PANTOPRAZOLE SODIUM
     Route: 065
  9. PALEXIA [Concomitant]
     Active Substance: TAPENTADOL HYDROCHLORIDE
     Route: 065
     Dates: end: 20180921
  10. TOREM [Concomitant]
     Active Substance: TORSEMIDE
     Route: 065
     Dates: start: 20180827
  11. CEFTRIAXONE. [Concomitant]
     Active Substance: CEFTRIAXONE
     Dates: start: 20180830, end: 20180910
  12. ETORICOXIB. [Concomitant]
     Active Substance: ETORICOXIB
     Dates: start: 20190401
  13. LIXIANA [Concomitant]
     Active Substance: EDOXABAN TOSYLATE
     Dates: start: 20190401
  14. FRAXIPARINE [Concomitant]
     Active Substance: NADROPARIN CALCIUM
     Route: 065
     Dates: start: 20180827, end: 20180905
  15. SPIRONOLACTON [Concomitant]
     Active Substance: SPIRONOLACTONE
     Dates: start: 20190401
  16. BEFIBRAT [Concomitant]
     Active Substance: BEZAFIBRATE
     Route: 065
     Dates: end: 20180921
  17. TAMSULOSIN [Concomitant]
     Active Substance: TAMSULOSIN
     Route: 065
  18. LIMPTAR [Concomitant]
     Active Substance: AMINOPHYLLINE\QUININE SULFATE
     Route: 065
     Dates: end: 20180921
  19. BISOPROLOL [Concomitant]
     Active Substance: BISOPROLOL
     Route: 065
     Dates: start: 20180827
  20. FRAXIPARIN [Concomitant]
     Active Substance: NADROPARIN CALCIUM
     Dates: start: 20190225
  21. IBRUTINIB [Suspect]
     Active Substance: IBRUTINIB
     Indication: CHRONIC LYMPHOCYTIC LEUKAEMIA
     Route: 048
     Dates: start: 20180813, end: 20180825
  22. ASPIRIN. [Concomitant]
     Active Substance: ASPIRIN
     Route: 065
     Dates: end: 20180921
  23. MOVICOL [Concomitant]
     Active Substance: POLYETHYLENE GLYCOL 3350\POTASSIUM CHLORIDE\SODIUM BICARBONATE\SODIUM CHLORIDE
     Route: 065
  24. PANTOPRAZOL [Concomitant]
     Active Substance: PANTOPRAZOLE SODIUM
     Indication: PROPHYLAXIS
     Route: 065
     Dates: start: 20180827
  25. MELPERON [Concomitant]
     Active Substance: MELPERONE
     Route: 065
     Dates: start: 20180921
  26. PIPERACILLINA/TAZOBACTAM [Concomitant]
     Active Substance: PIPERACILLIN SODIUM\TAZOBACTAM SODIUM
     Dates: start: 20180827, end: 20180830
  27. MAGNESIUM [Concomitant]
     Active Substance: MAGNESIUM
     Dates: start: 20190401
  28. DIGITOXIN [Concomitant]
     Active Substance: DIGITOXIN
     Route: 065
     Dates: start: 20180827, end: 20180921
  29. PREGABALIN. [Concomitant]
     Active Substance: PREGABALIN
     Dates: start: 20190401
  30. CLEXANE [Concomitant]
     Active Substance: ENOXAPARIN SODIUM
     Route: 065
     Dates: start: 20180906, end: 20180921
  31. FOLATE [Concomitant]
     Active Substance: FOLATE SODIUM
     Indication: PROPHYLAXIS
     Route: 065
     Dates: start: 20180921
  32. RISPERIDONE. [Concomitant]
     Active Substance: RISPERIDONE
     Route: 065
     Dates: start: 20180906
  33. LAXANS AL [Concomitant]
     Indication: PROPHYLAXIS
     Route: 065
     Dates: start: 20180906
  34. ALLOPURINOL. [Concomitant]
     Active Substance: ALLOPURINOL
     Dates: start: 20190401

REACTIONS (7)
  - Lymphadenitis bacterial [Recovered/Resolved]
  - Fall [Recovered/Resolved]
  - Hyperuricaemia [Recovered/Resolved]
  - Respiratory failure [Recovered/Resolved]
  - Renal injury [Recovered/Resolved]
  - Pneumonia [Recovered/Resolved]
  - Acute kidney injury [Recovered/Resolved]

NARRATIVE: CASE EVENT DATE: 20180827
